FAERS Safety Report 10914238 (Version 3)
Quarter: 2015Q2

REPORT INFORMATION
  Report Type: Spontaneous
  Country: US (occurrence: US)
  Receive Date: 20150313
  Receipt Date: 20150427
  Transmission Date: 20150821
  Serious: Yes (Hospitalization)
  Sender: FDA-Public Use
  Company Number: US-UNITED THERAPEUTICS-UNT-2015-001700

PATIENT
  Age: 82 Year
  Sex: Male
  Weight: 101.59 kg

DRUGS (3)
  1. REMODULIN [Suspect]
     Active Substance: TREPROSTINIL
     Indication: PULMONARY ARTERIAL HYPERTENSION
     Dosage: 0.0025 ?G/KG/MIN, CONTINUING
     Route: 058
     Dates: start: 20150121
  2. ADCIRCA [Concomitant]
     Active Substance: TADALAFIL
     Indication: PRODUCT USED FOR UNKNOWN INDICATION
  3. REMODULIN [Suspect]
     Active Substance: TREPROSTINIL
     Dosage: 0.0125 ?G/KG, CONTINUING
     Route: 058

REACTIONS (7)
  - Pain in extremity [Unknown]
  - Restlessness [Unknown]
  - Bladder neoplasm surgery [Unknown]
  - Insomnia [Unknown]
  - Dyspnoea [Unknown]
  - Fluid retention [Unknown]
  - Oedema peripheral [Unknown]

NARRATIVE: CASE EVENT DATE: 201502
